FAERS Safety Report 10433810 (Version 1)
Quarter: 2014Q3

REPORT INFORMATION
  Report Type: Spontaneous
  Country: US (occurrence: None)
  Receive Date: 20140904
  Receipt Date: 20140904
  Transmission Date: 20150326
  Serious: Yes (Hospitalization)
  Sender: FDA-Public Use
  Company Number: None

PATIENT
  Age: 66 Year
  Sex: Female
  Weight: 77.6 kg

DRUGS (2)
  1. CARBOPLATIN. [Suspect]
     Active Substance: CARBOPLATIN
     Dates: start: 20140814
  2. CARBOPLATIN. [Suspect]
     Active Substance: CARBOPLATIN
     Dates: start: 20140814

REACTIONS (12)
  - Nausea [None]
  - Weight decreased [None]
  - Dizziness [None]
  - Oxygen saturation decreased [None]
  - Oral disorder [None]
  - Vomiting [None]
  - Asthenia [None]
  - Hypovolaemia [None]
  - Neutrophil count decreased [None]
  - Haemoglobin decreased [None]
  - Pyrexia [None]
  - Orthostatic hypotension [None]

NARRATIVE: CASE EVENT DATE: 20140823
